FAERS Safety Report 13849172 (Version 1)
Quarter: 2017Q3

REPORT INFORMATION
  Report Type: Spontaneous
  Country: IN (occurrence: IN)
  Receive Date: 20170809
  Receipt Date: 20170809
  Transmission Date: 20171127
  Serious: No
  Sender: FDA-Public Use
  Company Number: IN-LUPIN PHARMACEUTICALS INC.-2017-01762

PATIENT
  Age: 24 Year
  Sex: Male

DRUGS (1)
  1. EPILIVE [Suspect]
     Active Substance: LEVETIRACETAM
     Indication: BRAIN INJURY
     Dosage: 1 DF, BID
     Route: 048
     Dates: start: 20161215

REACTIONS (1)
  - Somnolence [Not Recovered/Not Resolved]

NARRATIVE: CASE EVENT DATE: 20170405
